FAERS Safety Report 20600497 (Version 1)
Quarter: 2022Q1

REPORT INFORMATION
  Report Type: Spontaneous
  Country: FR (occurrence: FR)
  Receive Date: 20220316
  Receipt Date: 20220316
  Transmission Date: 20220423
  Serious: Yes (Life-Threatening)
  Sender: FDA-Public Use
  Company Number: None

PATIENT
  Age: 57 Year
  Sex: Male
  Weight: 90 kg

DRUGS (1)
  1. LOVENOX [Suspect]
     Active Substance: ENOXAPARIN SODIUM
     Indication: Atrial fibrillation
     Dosage: 0.9 MG/ML, QD
     Route: 058
     Dates: start: 20220202, end: 20220224

REACTIONS (1)
  - Haematoma muscle [Recovering/Resolving]

NARRATIVE: CASE EVENT DATE: 20220224
